FAERS Safety Report 4300161-9 (Version None)
Quarter: 2004Q1

REPORT INFORMATION
  Report Type: 
  Country: None (occurrence: None)
  Receive Date: 20040220
  Receipt Date: 20040210
  Transmission Date: 20041129
  Serious: Yes (Life-Threatening)
  Sender: FDA-Public Use
  Company Number: PHEH2004US01858

PATIENT
  Age: 44 Year
  Sex: Male
  Weight: 93 kg

DRUGS (6)
  1. LAMISIL [Suspect]
     Indication: NAIL TINEA
     Dosage: 250 MG, QD
     Route: 048
     Dates: start: 20040112, end: 20040128
  2. DURAGESIC [Concomitant]
  3. OXYCONTIN [Concomitant]
  4. IRON [Concomitant]
  5. BEXTRA [Concomitant]
  6. SYNTHROID [Concomitant]

REACTIONS (11)
  - ABDOMINAL DISTENSION [None]
  - ABDOMINAL PAIN [None]
  - ASCITES [None]
  - CONTUSION [None]
  - HEPATIC CIRRHOSIS [None]
  - HEPATITIS C [None]
  - JAUNDICE [None]
  - RASH [None]
  - SPIDER NAEVUS [None]
  - SPLENOMEGALY [None]
  - VISION BLURRED [None]
